FAERS Safety Report 20721880 (Version 1)
Quarter: 2022Q2

REPORT INFORMATION
  Report Type: Report from Study
  Country: IT (occurrence: IT)
  Receive Date: 20220418
  Receipt Date: 20220418
  Transmission Date: 20220721
  Serious: Yes (Hospitalization)
  Sender: FDA-Public Use
  Company Number: IT-UCBSA-2022020336

PATIENT
  Sex: Male

DRUGS (3)
  1. LACOSAMIDE [Suspect]
     Active Substance: LACOSAMIDE
     Indication: Product used for unknown indication
     Dosage: 2 TABLETS OF 100MG PER DAY
     Dates: start: 2014
  2. LACOSAMIDE [Suspect]
     Active Substance: LACOSAMIDE
     Dosage: 100MG IN THE MORNING AND 200MG IN THE EVENING
  3. KEPPRA [Suspect]
     Active Substance: LEVETIRACETAM
     Indication: Product used for unknown indication
     Dosage: 1000 MILLIGRAM, 2X/DAY (BID)
     Dates: start: 2014

REACTIONS (7)
  - Seizure [Unknown]
  - Asthenia [Unknown]
  - Vomiting [Unknown]
  - Confusional state [Unknown]
  - Feeling drunk [Not Recovered/Not Resolved]
  - Tinnitus [Not Recovered/Not Resolved]
  - Product prescribing error [Unknown]

NARRATIVE: CASE EVENT DATE: 20220301
